FAERS Safety Report 4572928-3 (Version None)
Quarter: 2005Q1

REPORT INFORMATION
  Report Type: 
  Country: None (occurrence: None)
  Receive Date: 20050208
  Receipt Date: 20040719
  Transmission Date: 20050727
  Serious: No
  Sender: FDA-Public Use
  Company Number: US-GLAXOSMITHKLINE-A0518781A

PATIENT
  Age: 56 Year
  Sex: Male

DRUGS (6)
  1. PAXIL [Suspect]
     Indication: DEPRESSION
     Dosage: 30MG PER DAY
     Route: 048
  2. ATENOLOL [Concomitant]
  3. WARFARIN SODIUM [Concomitant]
  4. XANAX [Concomitant]
  5. SIMVASTATIN [Concomitant]
  6. AMBIEN [Concomitant]

REACTIONS (3)
  - ANGER [None]
  - DIZZINESS [None]
  - NIGHTMARE [None]
